FAERS Safety Report 4475645-3 (Version None)
Quarter: 2004Q3

REPORT INFORMATION
  Report Type: 
  Country: None (occurrence: None)
  Receive Date: 20040923
  Receipt Date: 20040714
  Transmission Date: 20050211
  Serious: No
  Sender: FDA-Public Use
  Company Number: USA040772662

PATIENT
  Age: 62 Year
  Sex: Female

DRUGS (2)
  1. FORTEO [Suspect]
     Indication: BONE DENSITY DECREASED
  2. ALLERGY SHOT [Concomitant]

REACTIONS (5)
  - FEELING ABNORMAL [None]
  - INJECTION SITE DERMATITIS [None]
  - INJECTION SITE ERYTHEMA [None]
  - NAUSEA [None]
  - PALLOR [None]
